FAERS Safety Report 13663824 (Version 1)
Quarter: 2017Q2

REPORT INFORMATION
  Report Type: Spontaneous
  Country: US (occurrence: US)
  Receive Date: 20170617
  Receipt Date: 20170617
  Transmission Date: 20170830
  Serious: Yes (Other)
  Sender: FDA-Public Use
  Company Number: None

PATIENT
  Age: 71 Year
  Sex: Male
  Weight: 69.8 kg

DRUGS (1)
  1. NEULASTA [Suspect]
     Active Substance: PEGFILGRASTIM
     Dates: start: 20170615

REACTIONS (2)
  - Device malfunction [None]
  - Medical device pain [None]

NARRATIVE: CASE EVENT DATE: 20170617
